FAERS Safety Report 7124806-3 (Version None)
Quarter: 2010Q4

REPORT INFORMATION
  Report Type: 
  Country: None (occurrence: None)
  Receive Date: 20101123
  Receipt Date: 20101123
  Transmission Date: 20110411
  Serious: Yes (Other)
  Sender: FDA-Public Use
  Company Number: None

PATIENT
  Age: 81 Year
  Sex: Male
  Weight: 82 kg

DRUGS (1)
  1. VANCOMYCIN [Suspect]
     Indication: ANTIBIOTIC PROPHYLAXIS
     Dosage: 1000 MG ONCE IV  1 DOSE ONLY
     Route: 042

REACTIONS (4)
  - CHEST PAIN [None]
  - CHILLS [None]
  - HYPOTENSION [None]
  - SEPSIS [None]
